FAERS Safety Report 7751172-2 (Version None)
Quarter: 2011Q3

REPORT INFORMATION
  Report Type: 
  Country: None (occurrence: None)
  Receive Date: 20110914
  Receipt Date: 20070827
  Transmission Date: 20111222
  Serious: Yes (Other)
  Sender: FDA-Public Use
  Company Number: PHHY2007NL03753

PATIENT
  Sex: Female

DRUGS (2)
  1. SANDOSTATIN LAR [Suspect]
     Indication: PITUITARY TUMOUR BENIGN
     Dosage: 20 MG ONCE PER 04 WEEKS
     Route: 042
     Dates: start: 20070604
  2. SANDOSTATIN LAR [Suspect]
     Dosage: UNK UKN, UNK
     Route: 042
     Dates: start: 20070827

REACTIONS (1)
  - HYPOTHALAMO-PITUITARY DISORDER [None]
